FAERS Safety Report 8977783 (Version 2)
Quarter: 2013Q1

REPORT INFORMATION
  Report Type: Spontaneous
  Country: GB (occurrence: GB)
  Receive Date: 20121220
  Receipt Date: 20130320
  Transmission Date: 20140127
  Serious: Yes (Other)
  Sender: FDA-Public Use
  Company Number: GB-ELI_LILLY_AND_COMPANY-GB201212004820

PATIENT
  Sex: Female

DRUGS (1)
  1. BYETTA [Suspect]
     Dosage: 10 UG, BID
     Dates: start: 201112

REACTIONS (3)
  - Hepatic cirrhosis [Unknown]
  - Metastases to lung [Unknown]
  - Pancreatic mass [Unknown]
